FAERS Safety Report 14023164 (Version 1)
Quarter: 2017Q3

REPORT INFORMATION
  Report Type: Report from Study
  Country: US (occurrence: US)
  Receive Date: 20170929
  Receipt Date: 20170929
  Transmission Date: 20171128
  Serious: Yes (Other)
  Sender: FDA-Public Use
  Company Number: US-SHIRE-US201724022

PATIENT

DRUGS (1)
  1. FEIBA NF [Suspect]
     Active Substance: ANTI-INHIBITOR COAGULANT COMPLEX
     Indication: FACTOR VIII DEFICIENCY
     Dosage: UNK UNK, QOD FOR 1-2 WEEKS
     Route: 065

REACTIONS (2)
  - Drug ineffective [Unknown]
  - Soft tissue haemorrhage [Not Recovered/Not Resolved]
